FAERS Safety Report 5852110-X (Version None)
Quarter: 2008Q3

REPORT INFORMATION
  Report Type: 
  Country: None (occurrence: None)
  Receive Date: 20080821
  Receipt Date: 20080815
  Transmission Date: 20090109
  Serious: Yes (Death)
  Sender: FDA-Public Use
  Company Number: US-JNJFOC-20080803914

PATIENT
  Sex: Male

DRUGS (4)
  1. DURAGESIC-100 [Suspect]
     Indication: PAIN
     Route: 062
  2. FENTORA [Suspect]
     Indication: PAIN
     Route: 002
  3. PERCOCET [Concomitant]
  4. ACTIQ [Concomitant]

REACTIONS (2)
  - DRUG PRESCRIBING ERROR [None]
  - DRUG TOXICITY [None]
